FAERS Safety Report 5941171-5 (Version None)
Quarter: 2008Q4

REPORT INFORMATION
  Report Type: 
  Country: None (occurrence: None)
  Receive Date: 20081104
  Receipt Date: 20081025
  Transmission Date: 20090506
  Serious: Yes (Life-Threatening, Hospitalization, Other)
  Sender: FDA-Public Use
  Company Number: US-PFIZER INC-2008082027

PATIENT
  Sex: Male
  Weight: 63.1 kg

DRUGS (3)
  1. LIPITOR [Suspect]
     Indication: HYPERCHOLESTEROLAEMIA
     Route: 048
  2. LIPITOR [Suspect]
     Indication: BLOOD CHOLESTEROL INCREASED
  3. ASPIRIN 10GR TIMED DISINTEGRATION TAB [Concomitant]
     Route: 048

REACTIONS (2)
  - PROTEIN C DECREASED [None]
  - PULMONARY EMBOLISM [None]
